FAERS Safety Report 9605033 (Version 3)
Quarter: 2013Q4

REPORT INFORMATION
  Report Type: Spontaneous
  Country: BR (occurrence: BR)
  Receive Date: 20131008
  Receipt Date: 20131202
  Transmission Date: 20140711
  Serious: Yes (Other)
  Sender: FDA-Public Use
  Company Number: BR-JNJFOC-20131000718

PATIENT
  Age: 73 Year
  Sex: Female
  Weight: 52 kg

DRUGS (3)
  1. SIMPONI [Suspect]
     Indication: RHEUMATOID ARTHRITIS
     Route: 058
     Dates: start: 2013
  2. MANTIDAN [Suspect]
     Indication: TREMOR
     Route: 065
  3. METHOTREXATE [Concomitant]
     Indication: RHEUMATOID ARTHRITIS
     Route: 048
     Dates: start: 1998

REACTIONS (7)
  - Tachycardia [Unknown]
  - Electrocardiogram change [Unknown]
  - Burning sensation [Unknown]
  - Blood cholesterol abnormal [Unknown]
  - Blood triglycerides decreased [Unknown]
  - Drug dose omission [Unknown]
  - Device malfunction [Unknown]
